FAERS Safety Report 21554574 (Version 2)
Quarter: 2023Q1

REPORT INFORMATION
  Report Type: Spontaneous
  Country: US (occurrence: US)
  Receive Date: 20221104
  Receipt Date: 20230307
  Transmission Date: 20230418
  Serious: Yes (Other)
  Sender: FDA-Public Use
  Company Number: US-PFIZER INC-202201265994

PATIENT
  Sex: Female

DRUGS (18)
  1. VANCOMYCIN HYDROCHLORIDE [Suspect]
     Active Substance: VANCOMYCIN HYDROCHLORIDE
     Indication: Central venous catheter removal
     Dosage: 1 G
     Route: 042
     Dates: start: 20220818, end: 20220821
  2. VANCOMYCIN HYDROCHLORIDE [Suspect]
     Active Substance: VANCOMYCIN HYDROCHLORIDE
     Indication: Sepsis
  3. TALAZOPARIB [Concomitant]
     Active Substance: TALAZOPARIB
     Indication: Neoplasm
     Dosage: 0.25 MG, 1X/DAY (PO, DAYS 1-7 AND 15-21)
     Route: 048
     Dates: start: 20220714
  4. TALAZOPARIB [Concomitant]
     Active Substance: TALAZOPARIB
     Dosage: UNK
     Dates: start: 20220908
  5. RP-3500 [Concomitant]
     Active Substance: RP-3500
     Indication: Neoplasm
     Dosage: 80 MG, 1X/DAY (3 DAYS ON/4 DAYS OFF, DAYS 5-7 AND 19-21)
     Route: 048
     Dates: start: 20220714
  6. OMEPRAZOLE [Concomitant]
     Active Substance: OMEPRAZOLE
     Dosage: 20 MILLIGRAM (DELAYED RELEASE)
     Dates: start: 20220608
  7. ACETAMINOPHEN [Concomitant]
     Active Substance: ACETAMINOPHEN
     Dosage: 160/5 MILLIGRAM PER MILLILITRE (LIQUID)
     Dates: start: 20210210
  8. MAGNESIUM OXIDE [Concomitant]
     Active Substance: MAGNESIUM OXIDE
     Dosage: 400
     Dates: start: 20210412
  9. FOLIC ACID [Concomitant]
     Active Substance: FOLIC ACID
     Dosage: 1 MILLIGRAM
     Dates: start: 20210414
  10. LORAZEPAM [Concomitant]
     Active Substance: LORAZEPAM
     Dosage: 1 MILLIGRAM
     Dates: start: 20220608
  11. GABAPENTIN [Concomitant]
     Active Substance: GABAPENTIN
     Dosage: 600 MILLIGRAM
     Dates: start: 20220712, end: 20220810
  12. TIZANIDINE [Concomitant]
     Active Substance: TIZANIDINE
     Dosage: 4 MILLIGRAM
     Dates: start: 20220712, end: 20220810
  13. OXYCODONE [Concomitant]
     Active Substance: OXYCODONE
     Dosage: 10 MILLIGRAM
     Dates: start: 20220712, end: 20220810
  14. BETAMETHASONE DIPROPIONATE [Concomitant]
     Active Substance: BETAMETHASONE DIPROPIONATE
     Dosage: 0.05 PERCENT
     Dates: start: 20220215
  15. CANNABIS SATIVA SUBSP. INDICA TOP [Concomitant]
     Active Substance: CANNABIS SATIVA SUBSP. INDICA TOP
     Dosage: UNKNOWN
  16. XARELTO [Concomitant]
     Active Substance: RIVAROXABAN
     Dosage: 20 MILLIGRAM
     Dates: start: 20220719, end: 20220817
  17. SODIUM CHLORIDE [Concomitant]
     Active Substance: SODIUM CHLORIDE
     Dosage: UNK
     Dates: start: 20220601
  18. FENTANYL [Concomitant]
     Active Substance: FENTANYL
     Dosage: 100 MICROGRAM PER HOUR (FILM, EXTENDED RELEASE)
     Dates: start: 20220603

REACTIONS (1)
  - Drug ineffective [Unknown]

NARRATIVE: CASE EVENT DATE: 20220819
